FAERS Safety Report 11531307 (Version 2)
Quarter: 2015Q4

REPORT INFORMATION
  Report Type: Spontaneous
  Country: US (occurrence: US)
  Receive Date: 20150921
  Receipt Date: 20151014
  Transmission Date: 20160304
  Serious: Yes (Death)
  Sender: FDA-Public Use
  Company Number: US-009507513-1509USA008583

PATIENT
  Age: 28 Year
  Sex: Female

DRUGS (4)
  1. METHYLPREDNISOLONE SODIUM SUCCINATE. [Suspect]
     Active Substance: METHYLPREDNISOLONE SODIUM SUCCINATE
     Indication: SALVAGE THERAPY
  2. VINCRISTINE SULFATE. [Suspect]
     Active Substance: VINCRISTINE SULFATE
     Indication: SALVAGE THERAPY
  3. GLOBULIN, IMMUNE [Suspect]
     Active Substance: HUMAN IMMUNOGLOBULIN G
     Indication: SALVAGE THERAPY
  4. RITUXIMAB [Suspect]
     Active Substance: RITUXIMAB
     Indication: SALVAGE THERAPY

REACTIONS (2)
  - Drug ineffective [Fatal]
  - Maternal exposure during pregnancy [Recovered/Resolved]
